FAERS Safety Report 21352143 (Version 2)
Quarter: 2022Q3

REPORT INFORMATION
  Report Type: Report from Study
  Country: FR (occurrence: FR)
  Receive Date: 20220920
  Receipt Date: 20220927
  Transmission Date: 20221026
  Serious: Yes (Other)
  Sender: FDA-Public Use
  Company Number: FR-VALIDUS PHARMACEUTICALS LLC-FR-VDP-2022-015724

PATIENT

DRUGS (9)
  1. CEFOTAXIME SODIUM [Suspect]
     Active Substance: CEFOTAXIME SODIUM
     Indication: Product used for unknown indication
     Dosage: UNKNOWN
     Route: 065
  2. CEFTRIAXONE [Suspect]
     Active Substance: CEFTRIAXONE
     Indication: Skin test
     Dosage: 2 MILLIGRAM PER MILLILITRE DURING SKIN TEST
     Route: 065
  3. CEFUROXIME [Suspect]
     Active Substance: CEFUROXIME
     Indication: Skin test
     Dosage: 2 MILLIGRAM PER MILLILITRE DURING SKIN TEST
     Route: 065
  4. CEPHRADINE [Suspect]
     Active Substance: CEPHRADINE
     Indication: Skin test
     Dosage: 2 MILLIGRAM PER MILLILITRE DURING SKIN TEST
     Route: 065
  5. AMOXICILLIN [Suspect]
     Active Substance: AMOXICILLIN
     Indication: Skin test
     Dosage: 20 MILLIGRAM PER MILLILITRE DURING SKIN TEST
     Route: 065
  6. AMPICILLIN [Suspect]
     Active Substance: AMPICILLIN
     Indication: Skin test
     Dosage: 20 MILLIGRAM PER MILLILITRE DURING SKIN TEST
     Route: 065
  7. CEPHALOTHIN [Suspect]
     Active Substance: CEPHALOTHIN
     Indication: Skin test
     Dosage: 2 MILLIGRAM PER MILLILITRE
     Route: 065
  8. PENICILLOYL-POLYLYSINE [Suspect]
     Active Substance: PENICILLOYL-POLYLYSINE
     Indication: Skin test
     Dosage: 20 MILLIGRAM PER MILLILITRE DURING SKIN TEST
     Route: 065
  9. PENICILLIN G [Suspect]
     Active Substance: PENICILLIN G
     Indication: Skin test
     Dosage: 10000 INTERNATIONAL UNIT PER MILLILITRE DURING SKIN TEST
     Route: 065

REACTIONS (1)
  - Anaphylactic shock [Unknown]
